FAERS Safety Report 5444032-3 (Version None)
Quarter: 2007Q3

REPORT INFORMATION
  Report Type: 
  Country: None (occurrence: None)
  Receive Date: 20070831
  Receipt Date: 20070821
  Transmission Date: 20080115
  Serious: Yes (Other)
  Sender: FDA-Public Use
  Company Number: 159214USA

PATIENT
  Age: 78 Year
  Sex: Female

DRUGS (1)
  1. TAMOXIFEN CITRATE [Suspect]
     Indication: BREAST CANCER
     Dosage: ORAL
     Route: 048
     Dates: start: 19980101, end: 20030101

REACTIONS (3)
  - CARDIAC FAILURE CONGESTIVE [None]
  - PULMONARY THROMBOSIS [None]
  - THROMBOSIS [None]
